FAERS Safety Report 4837996-X (Version None)
Quarter: 2005Q4

REPORT INFORMATION
  Report Type: 
  Country: None (occurrence: None)
  Receive Date: 20051128
  Receipt Date: 20051101
  Transmission Date: 20060501
  Serious: Yes (Hospitalization)
  Sender: FDA-Public Use
  Company Number: JP-ROCHE-424481

PATIENT
  Age: 68 Year
  Sex: Male

DRUGS (6)
  1. KYTRIL [Suspect]
     Route: 042
     Dates: start: 20051026, end: 20051026
  2. TAXOTERE [Suspect]
     Indication: LUNG ADENOCARCINOMA
     Route: 041
     Dates: start: 20051026, end: 20051026
  3. ZANTAC [Concomitant]
     Route: 041
     Dates: start: 20051026, end: 20051026
  4. DECADRON [Concomitant]
     Route: 041
     Dates: start: 20051026, end: 20051026
  5. PARAPLATIN [Concomitant]
     Route: 041
     Dates: start: 20051026, end: 20051026
  6. VENA [Concomitant]
     Route: 048
     Dates: start: 20051026, end: 20051026

REACTIONS (6)
  - ALANINE AMINOTRANSFERASE INCREASED [None]
  - BLOOD ALKALINE PHOSPHATASE INCREASED [None]
  - BLOOD LACTATE DEHYDROGENASE INCREASED [None]
  - GAMMA-GLUTAMYLTRANSFERASE INCREASED [None]
  - HEPATIC FUNCTION ABNORMAL [None]
  - LIVER DISORDER [None]
